FAERS Safety Report 7099700-7 (Version None)
Quarter: 2010Q4

REPORT INFORMATION
  Report Type: 
  Country: None (occurrence: None)
  Receive Date: 20101112
  Receipt Date: 20101102
  Transmission Date: 20110411
  Serious: Yes (Death, Hospitalization)
  Sender: FDA-Public Use
  Company Number: IT-BAYER-201044328GPV

PATIENT
  Age: 91 Year
  Sex: Female

DRUGS (7)
  1. ASPIRIN [Suspect]
     Indication: PROPHYLAXIS
     Dosage: TOTAL DAILY DOSE: 100 MG
     Route: 048
     Dates: start: 20090501, end: 20100927
  2. NIMEDEX (NIMESULIDE) [Suspect]
     Indication: ARTHRALGIA
     Route: 048
     Dates: start: 20100916, end: 20100920
  3. OKI (KETOPROFEN) [Suspect]
     Indication: ARTHRALGIA
     Route: 030
     Dates: start: 20100914, end: 20100915
  4. ALDACTONE [Concomitant]
  5. PERIDON (DOMPERIDONE) [Concomitant]
  6. VALSARTAN [Concomitant]
     Route: 048
  7. CONTRAMAL (TRAMADOL) [Concomitant]

REACTIONS (7)
  - ANAEMIA [None]
  - CARDIAC ARREST [None]
  - DUODENAL ULCER HAEMORRHAGE [None]
  - HAEMATOCHEZIA [None]
  - MELAENA [None]
  - SUBILEUS [None]
  - VOMITING [None]
